FAERS Safety Report 5506513-3 (Version None)
Quarter: 2007Q4

REPORT INFORMATION
  Report Type: 
  Country: None (occurrence: None)
  Receive Date: 20071105
  Receipt Date: 20071031
  Transmission Date: 20080405
  Serious: Yes (Other)
  Sender: FDA-Public Use
  Company Number: A0689870A

PATIENT
  Age: 47 Year
  Sex: Female
  Weight: 118.2 kg

DRUGS (5)
  1. WELLBUTRIN [Suspect]
     Indication: DEPRESSION
     Route: 048
     Dates: start: 20060101, end: 20070901
  2. REBIF [Suspect]
     Indication: MULTIPLE SCLEROSIS
     Dosage: 44MCG THREE TIMES PER WEEK
     Route: 058
     Dates: start: 20020407
  3. OXYBUTYNIN CHLORIDE [Concomitant]
     Indication: BLADDER DISORDER
  4. AMANTADINE HCL [Concomitant]
  5. PROZAC [Concomitant]
     Indication: DEPRESSION

REACTIONS (10)
  - COGNITIVE DISORDER [None]
  - CONFUSIONAL STATE [None]
  - CONVULSION [None]
  - DEPRESSED LEVEL OF CONSCIOUSNESS [None]
  - EYE ROLLING [None]
  - INCOHERENT [None]
  - MANIA [None]
  - MEMORY IMPAIRMENT [None]
  - MOVEMENT DISORDER [None]
  - TREMOR [None]
